FAERS Safety Report 22298968 (Version 2)
Quarter: 2023Q2

REPORT INFORMATION
  Report Type: Spontaneous
  Country: US (occurrence: None)
  Receive Date: 20230509
  Receipt Date: 20230621
  Transmission Date: 20230721
  Serious: No
  Sender: FDA-Public Use
  Company Number: 2023A106742

PATIENT
  Sex: Female

DRUGS (1)
  1. TEZSPIRE [Suspect]
     Active Substance: TEZEPELUMAB-EKKO

REACTIONS (12)
  - Pneumonia [Unknown]
  - Back pain [Unknown]
  - Migraine [Unknown]
  - Myalgia [Unknown]
  - Pyrexia [Unknown]
  - Feeling abnormal [Unknown]
  - Pain [Unknown]
  - Illness [Unknown]
  - Pleuritic pain [Unknown]
  - White blood cell count abnormal [Unknown]
  - Neck pain [Unknown]
  - Arthralgia [Unknown]
